FAERS Safety Report 13260189 (Version 2)
Quarter: 2017Q2

REPORT INFORMATION
  Report Type: Spontaneous
  Country: NO (occurrence: NO)
  Receive Date: 20170222
  Receipt Date: 20170607
  Transmission Date: 20170830
  Serious: Yes (Hospitalization, Other)
  Sender: FDA-Public Use
  Company Number: NO-SUNOVION-2017SUN000721

PATIENT

DRUGS (3)
  1. LATUDA [Suspect]
     Active Substance: LURASIDONE HYDROCHLORIDE
     Dosage: 37 MG, UNK
     Route: 048
     Dates: start: 20170209
  2. LATUDA [Suspect]
     Active Substance: LURASIDONE HYDROCHLORIDE
     Indication: MAJOR DEPRESSION
     Dosage: 37 MG, UNK
     Route: 048
     Dates: start: 20170119
  3. LATUDA [Suspect]
     Active Substance: LURASIDONE HYDROCHLORIDE
     Indication: GENERALISED ANXIETY DISORDER
     Dosage: 74 MG, UNK
     Route: 048
     Dates: start: 20170202

REACTIONS (2)
  - Off label use [Unknown]
  - Electrocardiogram QT prolonged [Recovering/Resolving]
